FAERS Safety Report 11670581 (Version 1)
Quarter: 2015Q4

REPORT INFORMATION
  Report Type: Spontaneous
  Country: US (occurrence: US)
  Receive Date: 20151027
  Receipt Date: 20151027
  Transmission Date: 20160304
  Serious: No
  Sender: FDA-Public Use
  Company Number: US-ELI_LILLY_AND_COMPANY-US201005002499

PATIENT
  Sex: Female

DRUGS (1)
  1. FORTEO [Suspect]
     Active Substance: TERIPARATIDE
     Indication: OSTEOPOROSIS
     Dates: start: 20100506

REACTIONS (6)
  - Hypersensitivity [Unknown]
  - Hypoaesthesia [Unknown]
  - Injection site pruritus [Unknown]
  - Pruritus generalised [Unknown]
  - Rash generalised [Unknown]
  - Injection site erythema [Unknown]

NARRATIVE: CASE EVENT DATE: 20100506
